FAERS Safety Report 7274835-4 (Version None)
Quarter: 2011Q1

REPORT INFORMATION
  Report Type: 
  Country: None (occurrence: None)
  Receive Date: 20110204
  Receipt Date: 20110110
  Transmission Date: 20110831
  Serious: Yes (Hospitalization, Other)
  Sender: FDA-Public Use
  Company Number: JP-PFIZER INC-2010076733

PATIENT
  Age: 40 Year
  Sex: Female
  Weight: 43 kg

DRUGS (3)
  1. PREMARIN [Suspect]
     Indication: INFERTILITY
     Dosage: 0.625 MG, 1X/DAY
     Route: 048
     Dates: start: 20091001, end: 20100514
  2. HYSRON-H [Suspect]
     Indication: INFERTILITY
     Dosage: 10 MG, 1X/DAY
     Route: 048
     Dates: end: 20100514
  3. HMG [Suspect]
     Indication: INFERTILITY
     Dosage: UNK
     Route: 058
     Dates: start: 20100101, end: 20100301

REACTIONS (4)
  - PRURITUS GENERALISED [None]
  - HYPERBILIRUBINAEMIA [None]
  - ALANINE AMINOTRANSFERASE INCREASED [None]
  - LIVER DISORDER [None]
